FAERS Safety Report 9621462 (Version 1)
Quarter: 2013Q4

REPORT INFORMATION
  Report Type: Spontaneous
  Country: US (occurrence: None)
  Receive Date: 20131011
  Receipt Date: 20131011
  Transmission Date: 20140711
  Serious: Yes (Other)
  Sender: FDA-Public Use
  Company Number: None

PATIENT
  Age: 69 Year
  Sex: Male
  Weight: 78.2 kg

DRUGS (6)
  1. CLOPIDOGREL [Suspect]
     Indication: CORONARY ARTERY DISEASE
     Dosage: Q DAY
     Route: 048
     Dates: start: 201308, end: 201309
  2. NAPROXON [Concomitant]
  3. NITROQUICK [Concomitant]
  4. TOPROL [Concomitant]
  5. ATIVAN [Concomitant]
  6. KETOPROFEN 10 % TOPICAL CREAM [Concomitant]

REACTIONS (1)
  - Rectal haemorrhage [None]
